FAERS Safety Report 7417896-1 (Version None)
Quarter: 2011Q2

REPORT INFORMATION
  Report Type: 
  Country: None (occurrence: None)
  Receive Date: 20110406
  Receipt Date: 20110325
  Transmission Date: 20111010
  Serious: Yes (Other)
  Sender: FDA-Public Use
  Company Number: 026432

PATIENT
  Sex: Male

DRUGS (4)
  1. CIMZIA [Suspect]
     Indication: RHEUMATOID ARTHRITIS
     Dosage: (400 MG 1X/15 DAYS SUBCUTANEOUS)
     Route: 058
     Dates: start: 20101226, end: 20110109
  2. SPECIAFOLDINE [Concomitant]
  3. CORTANCYL [Concomitant]
  4. NOVATREX /00113801/ [Concomitant]

REACTIONS (8)
  - SKIN MASS [None]
  - FATIGUE [None]
  - PAIN IN EXTREMITY [None]
  - INFLUENZA [None]
  - INJECTION SITE PAIN [None]
  - FEELING ABNORMAL [None]
  - MYALGIA [None]
  - RHEUMATOID ARTHRITIS [None]
